FAERS Safety Report 18153171 (Version 2)
Quarter: 2020Q4

REPORT INFORMATION
  Report Type: Spontaneous
  Country: US (occurrence: US)
  Receive Date: 20200815
  Receipt Date: 20201006
  Transmission Date: 20210113
  Serious: No
  Sender: FDA-Public Use
  Company Number: US-ASTRAZENECA-2020SF02171

PATIENT
  Age: 20917 Day
  Sex: Female
  Weight: 52.2 kg

DRUGS (4)
  1. SYMBICORT [Suspect]
     Active Substance: BUDESONIDE\FORMOTEROL FUMARATE DIHYDRATE
     Indication: CHRONIC OBSTRUCTIVE PULMONARY DISEASE
     Dosage: 160/4.5 MCG, 2 PUFFS, TWICE DAILY
     Route: 055
  2. VENTOLIN INH [Concomitant]
     Indication: CHRONIC OBSTRUCTIVE PULMONARY DISEASE
     Dosage: AS REQUIRED
     Route: 055
  3. VENTOLIN INH [Concomitant]
     Indication: ASTHMA
     Dosage: AS REQUIRED
     Route: 055
  4. SYMBICORT [Suspect]
     Active Substance: BUDESONIDE\FORMOTEROL FUMARATE DIHYDRATE
     Indication: CHRONIC OBSTRUCTIVE PULMONARY DISEASE
     Dosage: 160/4.5 MCG, 2 PUFFS, TWICE DAILY
     Route: 055
     Dates: start: 20200806

REACTIONS (3)
  - Intentional device misuse [Unknown]
  - Dyspnoea [Unknown]
  - Product taste abnormal [Unknown]

NARRATIVE: CASE EVENT DATE: 20200806
